FAERS Safety Report 19627981 (Version 1)
Quarter: 2021Q3

REPORT INFORMATION
  Report Type: Spontaneous
  Country: US (occurrence: US)
  Receive Date: 20210729
  Receipt Date: 20210729
  Transmission Date: 20211014
  Serious: Yes (Other)
  Sender: FDA-Public Use
  Company Number: US-BRISTOL-MYERS SQUIBB COMPANY-BMS-2021-072838

PATIENT
  Age: 83 Year
  Sex: Female
  Weight: 63.5 kg

DRUGS (1)
  1. ORENCIA [Suspect]
     Active Substance: ABATACEPT
     Indication: RHEUMATOID ARTHRITIS
     Dosage: 125 MILLIGRAM
     Route: 058

REACTIONS (5)
  - Tooth infection [Unknown]
  - Clostridium difficile infection [Unknown]
  - Tooth disorder [Unknown]
  - Illness [Unknown]
  - Body height decreased [Unknown]

NARRATIVE: CASE EVENT DATE: 202103
